FAERS Safety Report 4503997-4 (Version None)
Quarter: 2004Q3

REPORT INFORMATION
  Report Type: 
  Country: None (occurrence: None)
  Receive Date: 20040927
  Receipt Date: 20040629
  Transmission Date: 20050211
  Serious: No
  Sender: FDA-Public Use
  Company Number: USA040671437

PATIENT
  Age: 28 Year
  Sex: Male

DRUGS (2)
  1. STRATTERA [Suspect]
     Indication: ATTENTION DEFICIT/HYPERACTIVITY DISORDER
     Dosage: 100 MG/1 DAY
     Dates: start: 20031101
  2. LEXAPRO [Concomitant]

REACTIONS (3)
  - DYSPHONIA [None]
  - FEELING ABNORMAL [None]
  - SPEECH DISORDER [None]
